FAERS Safety Report 8927583 (Version 2)
Quarter: 2012Q4

REPORT INFORMATION
  Report Type: 
  Country: US (occurrence: US)
  Receive Date: 20121127
  Receipt Date: 20121220
  Transmission Date: 20130627
  Serious: Yes (Hospitalization, Other)
  Sender: FDA-Public Use
  Company Number: US-ASTRAZENECA-2012SE87745

PATIENT
  Age: 76 Year
  Sex: Female
  Weight: 64.9 kg

DRUGS (9)
  1. NEXIUM [Suspect]
     Indication: CREST SYNDROME
     Route: 048
  2. NEXIUM [Suspect]
     Indication: CREST SYNDROME
     Route: 048
     Dates: start: 1999
  3. ANTIOBIOTICS [Suspect]
     Route: 065
  4. TRAVASTATIN [Concomitant]
     Dates: start: 1982
  5. DIAZEPAM [Concomitant]
     Dates: start: 1992
  6. FENOFIBRATE [Concomitant]
     Dates: start: 1992
  7. PROPANOLOL [Concomitant]
     Dates: start: 1992
  8. CALCIUM WITH VITAMIN D [Concomitant]
     Dates: start: 2009
  9. FIORCET [Concomitant]
     Dates: start: 2011

REACTIONS (11)
  - Pneumonia [Unknown]
  - Gastrooesophageal reflux disease [Unknown]
  - Pneumonia aspiration [Recovered/Resolved]
  - Throat tightness [Unknown]
  - Aspiration [Unknown]
  - Gastrooesophageal reflux disease [Unknown]
  - CREST syndrome [Unknown]
  - Diarrhoea [Recovered/Resolved]
  - Drug dose omission [Unknown]
  - Off label use [Not Recovered/Not Resolved]
  - Off label use [Unknown]
